FAERS Safety Report 8256225-0 (Version None)
Quarter: 2012Q2

REPORT INFORMATION
  Report Type: 
  Country: None (occurrence: None)
  Receive Date: 20120403
  Receipt Date: 20120329
  Transmission Date: 20120825
  Serious: Yes (Life-Threatening)
  Sender: FDA-Public Use
  Company Number: DE-ASTRAZENECA-2012SE20850

PATIENT
  Age: 73 Year
  Sex: Male

DRUGS (3)
  1. BRILIQUE [Suspect]
     Indication: ACUTE MYOCARDIAL INFARCTION
     Route: 048
     Dates: start: 20120319
  2. FONDAPARINUX SODIUM [Concomitant]
     Route: 058
     Dates: start: 20120317, end: 20120318
  3. ASPIRIN [Concomitant]
     Indication: ACUTE MYOCARDIAL INFARCTION
     Route: 048
     Dates: start: 20120317

REACTIONS (2)
  - PERICARDIAL HAEMORRHAGE [None]
  - CARDIOGENIC SHOCK [None]
